FAERS Safety Report 9456372 (Version 1)
Quarter: 2013Q3

REPORT INFORMATION
  Report Type: Spontaneous
  Country: GB (occurrence: GB)
  Receive Date: 20130813
  Receipt Date: 20130813
  Transmission Date: 20140515
  Serious: Yes (Other)
  Sender: FDA-Public Use
  Company Number: GB-ACTAVIS-2013-14400

PATIENT
  Sex: Male

DRUGS (1)
  1. TRAMADOL HYDROCHLORIDE (UNKNOWN) [Suspect]
     Indication: PAIN MANAGEMENT
     Dosage: 50 MG, TID
     Route: 065

REACTIONS (4)
  - Irritability [Unknown]
  - Sleep disorder [Unknown]
  - Muscle spasms [Unknown]
  - Withdrawal syndrome [Unknown]
